FAERS Safety Report 12741657 (Version 1)
Quarter: 2016Q3

REPORT INFORMATION
  Report Type: Spontaneous
  Country: US (occurrence: US)
  Receive Date: 20160913
  Receipt Date: 20160913
  Transmission Date: 20161109
  Serious: No
  Sender: FDA-Public Use
  Company Number: None

PATIENT
  Age: 55 Year
  Sex: Female
  Weight: 37.6 kg

DRUGS (1)
  1. MINOCYCLINE CAPSULES [Suspect]
     Active Substance: MINOCYCLINE\MINOCYCLINE HYDROCHLORIDE

REACTIONS (2)
  - Gastrointestinal pain [None]
  - Abdominal discomfort [None]

NARRATIVE: CASE EVENT DATE: 20160913
